FAERS Safety Report 18494488 (Version 1)
Quarter: 2020Q4

REPORT INFORMATION
  Report Type: Spontaneous
  Country: JP (occurrence: JP)
  Receive Date: 20201112
  Receipt Date: 20201112
  Transmission Date: 20210114
  Serious: Yes (Other)
  Sender: FDA-Public Use
  Company Number: NVSJ2020JP011704

PATIENT
  Sex: Female
  Weight: 52 kg

DRUGS (6)
  1. ZOLEDRONIC ACID [Suspect]
     Active Substance: ZOLEDRONIC ACID
     Indication: METASTASES TO BONE
     Dosage: 4 MG, Q4W
     Route: 065
     Dates: start: 20170421
  2. DENOSUMAB [Concomitant]
     Active Substance: DENOSUMAB
     Indication: METASTASES TO BONE
     Dosage: 120 MG, Q4W
     Route: 065
     Dates: start: 20171117
  3. SANDOSTATINA LAR IM INJECTION [Suspect]
     Active Substance: OCTREOTIDE ACETATE
     Indication: NEUROENDOCRINE TUMOUR
     Dosage: 30 MG/ MONTH
     Route: 030
     Dates: start: 20160315
  4. AFINITOR [Suspect]
     Active Substance: EVEROLIMUS
     Indication: NEUROENDOCRINE TUMOUR
     Dosage: 10 MG
     Route: 048
     Dates: start: 20161004
  5. SANDOSTATINA LAR IM INJECTION [Suspect]
     Active Substance: OCTREOTIDE ACETATE
  6. SANDOSTATINA LAR IM INJECTION [Suspect]
     Active Substance: OCTREOTIDE ACETATE

REACTIONS (4)
  - Osteonecrosis of jaw [Unknown]
  - Neuroendocrine tumour [Unknown]
  - Metastases to spine [Unknown]
  - Malignant neoplasm progression [Unknown]

NARRATIVE: CASE EVENT DATE: 20181030
